FAERS Safety Report 4775434-6 (Version None)
Quarter: 2005Q3

REPORT INFORMATION
  Report Type: 
  Country: None (occurrence: None)
  Receive Date: 20050921
  Receipt Date: 20050921
  Transmission Date: 20060218
  Serious: Yes (Hospitalization)
  Sender: FDA-Public Use
  Company Number: None

PATIENT
  Sex: Male

DRUGS (12)
  1. MEGESTROL SUSPENSION 800 MG [Suspect]
     Indication: INCREASED APPETITE
     Dosage: 800 MG AM PO
     Route: 048
  2. ACETAMINOPHEN [Concomitant]
  3. ALBUTEROL [Concomitant]
  4. ATENOLOL [Concomitant]
  5. CITALOPRAM [Concomitant]
  6. DOCUSATE [Concomitant]
  7. GUAFENESIN SYRUP [Concomitant]
  8. IPRATROPIUM BROMIDE [Concomitant]
  9. ALUMINUM HYDROXIDE AND MAGNESIUM TRISILICATE [Concomitant]
  10. OMEPRAZOLE [Concomitant]
  11. RANITIDINE [Concomitant]
  12. RISPERIDONE [Concomitant]

REACTIONS (2)
  - CYANOSIS [None]
  - DEEP VEIN THROMBOSIS [None]
